FAERS Safety Report 16094595 (Version 3)
Quarter: 2019Q1

REPORT INFORMATION
  Report Type: Spontaneous
  Country: FR (occurrence: FR)
  Receive Date: 20190320
  Receipt Date: 20190320
  Transmission Date: 20190418
  Serious: Yes (Other)
  Sender: FDA-Public Use
  Company Number: PHHY2019FR042193

PATIENT
  Age: 52 Year
  Sex: Male

DRUGS (6)
  1. EVEROLIMUS. [Suspect]
     Active Substance: EVEROLIMUS
     Indication: HEART TRANSPLANT
     Dosage: 3 MG, QD
     Route: 065
  2. TACROLIMUS. [Suspect]
     Active Substance: TACROLIMUS
     Indication: HEART TRANSPLANT
     Dosage: 2 MG, QD
     Route: 065
  3. PREDNISOLONE. [Suspect]
     Active Substance: PREDNISOLONE
     Indication: HEART TRANSPLANT
     Dosage: 5 MG, QD
     Route: 065
  4. TACROLIMUS. [Suspect]
     Active Substance: TACROLIMUS
     Indication: IMMUNOSUPPRESSANT DRUG THERAPY
  5. PREDNISOLONE. [Suspect]
     Active Substance: PREDNISOLONE
     Indication: IMMUNOSUPPRESSANT DRUG THERAPY
  6. EVEROLIMUS. [Suspect]
     Active Substance: EVEROLIMUS
     Indication: IMMUNOSUPPRESSANT DRUG THERAPY

REACTIONS (2)
  - Hepatitis E [Recovered/Resolved]
  - Chronic hepatitis [Recovered/Resolved]
